FAERS Safety Report 26151013 (Version 1)
Quarter: 2025Q4

REPORT INFORMATION
  Report Type: Spontaneous
  Country: CN (occurrence: CN)
  Receive Date: 20251212
  Receipt Date: 20251212
  Transmission Date: 20260118
  Serious: Yes (Other)
  Sender: FRESENIUS KABI
  Company Number: CN-FreseniusKabi-FK202516713

PATIENT
  Age: 44 Year
  Sex: Female
  Weight: 55 kg

DRUGS (8)
  1. OMEGAVEN [Suspect]
     Active Substance: FISH OIL
     Indication: Fluid replacement
     Dosage: FOA-INJECTION?30/NOV/2025 AT 10:07: ABOVE GROUP OF NUTRITION SOLUTION WAS GIVEN
     Route: 041
     Dates: start: 20251121, end: 20251130
  2. ALANYL GLUTAMINE [Suspect]
     Active Substance: ALANYL GLUTAMINE
     Indication: Fluid replacement
     Dosage: FOA-INJECTION?30/NOV/2025 AT 10:07: ABOVE GROUP OF NUTRITION SOLUTION WAS GIVEN
     Route: 041
     Dates: start: 20251121, end: 20251130
  3. POTASSIUM CHLORIDE [Suspect]
     Active Substance: POTASSIUM CHLORIDE
     Indication: Fluid replacement
     Dosage: FOA-INJECTION?30/NOV/2025 AT 10:07: ABOVE GROUP OF NUTRITION SOLUTION WAS GIVEN
     Route: 041
     Dates: start: 20251121, end: 20251130
  4. INSULIN HUMAN [Suspect]
     Active Substance: INSULIN HUMAN
     Indication: Fluid replacement
     Dosage: FOA-INJECTION?30/NOV/2025 AT 10:07: ABOVE GROUP OF NUTRITION SOLUTION WAS GIVEN
     Route: 041
     Dates: start: 20251121, end: 20251130
  5. ELECTROLYTES NOS\MINERALS [Suspect]
     Active Substance: ELECTROLYTES NOS\MINERALS
     Indication: Fluid replacement
     Dosage: FOA-INJECTION?30/NOV/2025 AT 10:07: ABOVE GROUP OF NUTRITION SOLUTION WAS GIVEN
     Route: 041
     Dates: start: 20251121, end: 20251130
  6. VITAMINS [Suspect]
     Active Substance: VITAMINS
     Indication: Fluid replacement
     Dosage: FOA-INJECTION?30/NOV/2025 AT 10:07: ABOVE GROUP OF NUTRITION SOLUTION WAS GIVEN
     Route: 041
     Dates: start: 20251121, end: 20251130
  7. SODIUM CHLORIDE [Suspect]
     Active Substance: SODIUM CHLORIDE
     Indication: Fluid replacement
     Dosage: FOA-INJECTION?30/NOV/2025 AT 10:07: ABOVE GROUP OF NUTRITION SOLUTION WAS GIVEN
     Route: 041
     Dates: start: 20251121, end: 20251130
  8. TPN [Suspect]
     Active Substance: AMINO ACIDS\DEXTROSE\ELECTROLYTES NOS\SOYBEAN OIL
     Indication: Fluid replacement
     Dosage: FOA-INJECTION?30/NOV/2025 AT 10:07: ABOVE GROUP OF NUTRITION SOLUTION WAS GIVEN
     Route: 041
     Dates: start: 20251121, end: 20251130

REACTIONS (1)
  - Anaphylactic shock [Recovering/Resolving]

NARRATIVE: CASE EVENT DATE: 20251130
